FAERS Safety Report 12615122 (Version 7)
Quarter: 2016Q4

REPORT INFORMATION
  Report Type: Spontaneous
  Country: AU (occurrence: AU)
  Receive Date: 20160802
  Receipt Date: 20161111
  Transmission Date: 20170207
  Serious: Yes (Other)
  Sender: FDA-Public Use
  Company Number: AU-SA-2016SA007992

PATIENT
  Age: 59 Year
  Sex: Female
  Weight: 78 kg

DRUGS (4)
  1. CEREZYME [Suspect]
     Active Substance: IMIGLUCERASE
     Dosage: DOSE:25.64 UNIT(S)/KILOGRAM BODYWEIGHT
     Route: 041
     Dates: start: 201103
  2. CEREZYME [Suspect]
     Active Substance: IMIGLUCERASE
     Dosage: DOSE:25.64 UNIT(S)/KILOGRAM BODYWEIGHT
     Route: 041
     Dates: start: 201103
  3. CEREZYME [Suspect]
     Active Substance: IMIGLUCERASE
     Dosage: DOSE:25.64 UNIT(S)/KILOGRAM BODYWEIGHT
     Route: 041
     Dates: start: 201103
  4. CEREZYME [Suspect]
     Active Substance: IMIGLUCERASE
     Dosage: DOSE:25.64 UNIT(S)/KILOGRAM BODYWEIGHT
     Route: 041
     Dates: start: 201103

REACTIONS (10)
  - Joint effusion [Not Recovered/Not Resolved]
  - Nasal congestion [Recovering/Resolving]
  - Lower respiratory tract infection [Recovered/Resolved]
  - Seasonal allergy [Recovering/Resolving]
  - Eye pruritus [Recovering/Resolving]
  - Contusion [Not Recovered/Not Resolved]
  - Dysuria [Recovered/Resolved]
  - Poor venous access [Recovered/Resolved]
  - Viral infection [Recovered/Resolved]
  - Urinary tract infection [Recovered/Resolved]

NARRATIVE: CASE EVENT DATE: 20151204
